FAERS Safety Report 4930190-3 (Version None)
Quarter: 2006Q1

REPORT INFORMATION
  Report Type: 
  Country: None (occurrence: None)
  Receive Date: 20060302
  Receipt Date: 20060216
  Transmission Date: 20060701
  Serious: Yes (Other)
  Sender: FDA-Public Use
  Company Number: JP-ROCHE-437301

PATIENT
  Age: 12 Year
  Sex: Male
  Weight: 50 kg

DRUGS (3)
  1. TAMIFLU [Suspect]
     Route: 048
     Dates: start: 20050411, end: 20050411
  2. TAMIFLU [Suspect]
     Route: 048
     Dates: start: 20050412, end: 20050413
  3. CLARITHROMYCIN [Concomitant]
     Route: 048
     Dates: start: 20050411

REACTIONS (2)
  - EXCITABILITY [None]
  - HALLUCINATION [None]
